FAERS Safety Report 6583316-2 (Version None)
Quarter: 2010Q1

REPORT INFORMATION
  Report Type: 
  Country: None (occurrence: None)
  Receive Date: 20100216
  Receipt Date: 20100215
  Transmission Date: 20100710
  Serious: Yes (Hospitalization)
  Sender: FDA-Public Use
  Company Number: CHPA2009DE22829

PATIENT
  Sex: Male

DRUGS (1)
  1. SCOPOLAMINE [Suspect]
     Indication: PROPHYLAXIS AGAINST MOTION SICKNESS
     Dosage: 1 DF, Q72H
     Route: 062
     Dates: start: 20091107, end: 20091114

REACTIONS (7)
  - BALANCE DISORDER [None]
  - DIZZINESS [None]
  - EYE ROLLING [None]
  - FLUSHING [None]
  - MALAISE [None]
  - NAUSEA [None]
  - VISUAL IMPAIRMENT [None]
